FAERS Safety Report 16463260 (Version 1)
Quarter: 2019Q2

REPORT INFORMATION
  Report Type: Spontaneous
  Country: US (occurrence: US)
  Receive Date: 20190621
  Receipt Date: 20190621
  Transmission Date: 20190711
  Serious: Yes (Hospitalization)
  Sender: FDA-Public Use
  Company Number: US-RADIUS HEALTH INC.-2019US002086

PATIENT
  Sex: Female

DRUGS (2)
  1. TYMLOS [Suspect]
     Active Substance: ABALOPARATIDE
     Indication: OSTEOPOROSIS POSTMENOPAUSAL
     Dosage: 80 MCG
     Route: 058
     Dates: start: 201810, end: 201811
  2. TYMLOS [Suspect]
     Active Substance: ABALOPARATIDE
     Dosage: 80 MCG
     Route: 058
     Dates: start: 20190605, end: 20190610

REACTIONS (9)
  - Tongue movement disturbance [Unknown]
  - Vertigo [Unknown]
  - Insurance issue [Unknown]
  - Tinnitus [Unknown]
  - Disorientation [Unknown]
  - Product dose omission [Unknown]
  - Dizziness [Unknown]
  - Headache [Unknown]
  - Vomiting [Unknown]
